FAERS Safety Report 8365204-4 (Version None)
Quarter: 2012Q2

REPORT INFORMATION
  Report Type: 
  Country: None (occurrence: None)
  Receive Date: 20120516
  Receipt Date: 20120506
  Transmission Date: 20120825
  Serious: Yes (Other)
  Sender: FDA-Public Use
  Company Number: US-ROCHE-1065338

PATIENT
  Sex: Female
  Weight: 43.584 kg

DRUGS (5)
  1. ACIDOPHILUS [Concomitant]
     Route: 048
  2. AZITHROMYCIN [Concomitant]
     Route: 048
  3. PAZOPANIB [Concomitant]
     Route: 048
  4. XELODA [Suspect]
     Indication: LUNG NEOPLASM MALIGNANT
     Route: 048
     Dates: start: 20120320
  5. RAPAMUNE [Concomitant]
     Route: 048

REACTIONS (6)
  - PAIN IN EXTREMITY [None]
  - UNEVALUABLE EVENT [None]
  - ERYTHEMA [None]
  - SKIN INDURATION [None]
  - DRY SKIN [None]
  - DIARRHOEA [None]
